FAERS Safety Report 12189552 (Version 2)
Quarter: 2018Q1

REPORT INFORMATION
  Report Type: Spontaneous
  Country: GB (occurrence: GB)
  Receive Date: 20160318
  Receipt Date: 20180314
  Transmission Date: 20180508
  Serious: Yes (Life-Threatening, Hospitalization)
  Sender: FDA-Public Use
  Company Number: GB-ASTRAZENECA-2016SE28084

PATIENT
  Age: 59 Year
  Sex: Female

DRUGS (4)
  1. METFORMIN [Concomitant]
     Active Substance: METFORMIN HYDROCHLORIDE
     Route: 065
  2. DAPAGLIFLOZIN. [Suspect]
     Active Substance: DAPAGLIFLOZIN
     Indication: DIABETES MELLITUS MANAGEMENT
     Route: 048
  3. BIPHASIC INSULIN [Concomitant]
     Route: 065
  4. LIRAGLUTIDE [Concomitant]
     Active Substance: LIRAGLUTIDE
     Route: 065

REACTIONS (1)
  - Diabetic ketoacidosis [Recovered/Resolved]
